FAERS Safety Report 6055060-1 (Version None)
Quarter: 2009Q1

REPORT INFORMATION
  Report Type: 
  Country: None (occurrence: None)
  Receive Date: 20090122
  Receipt Date: 20090115
  Transmission Date: 20090719
  Serious: Yes (Death, Life-Threatening, Hospitalization)
  Sender: FDA-Public Use
  Company Number: A-US2008-19869

PATIENT
  Age: 52 Year
  Sex: Female

DRUGS (20)
  1. VENTAVIS [Suspect]
     Indication: PULMONARY ARTERIAL HYPERTENSION
     Dosage: 2.5 UG, 6 X DAY, RESPIRATORY
     Route: 055
     Dates: start: 20080101
  2. VENTAVIS [Suspect]
     Indication: PULMONARY ARTERIAL HYPERTENSION
     Dosage: 2.5 UG, 6 X DAY, RESPIRATORY
     Route: 055
     Dates: start: 20080201
  3. REVATIO [Concomitant]
  4. MARCUMAR [Concomitant]
  5. NEXIUM (ESOMEPRAZOLE SODIUM) [Concomitant]
  6. LEVOTHYROXINE SODIUM [Concomitant]
  7. TRILEPTAL [Concomitant]
  8. PHOS-EX (CALCIUM ACETATE) [Concomitant]
  9. FOSRENOL [Concomitant]
  10. ESCITALOPRAM [Concomitant]
  11. PREDNISOLONE [Concomitant]
  12. RAMIPRIL [Concomitant]
  13. TORSEMIDE [Concomitant]
  14. CYCLOPHOSPHAMIDE [Concomitant]
  15. ASTONIN-H (FLUDROCORTISONE) [Concomitant]
  16. HYDROCORTISONE (HYDROCORTISONE) [Concomitant]
  17. NOVALGIN (METAMIZOLE SODIUM) [Concomitant]
  18. FLOXAL (OFLOXACIN) [Concomitant]
  19. VOLTAREN [Concomitant]
  20. URBASON (METHYLPREDNISOLONE) [Concomitant]

REACTIONS (21)
  - ABDOMINAL WALL ABSCESS [None]
  - ADRENOCORTICAL INSUFFICIENCY ACUTE [None]
  - ASCITES [None]
  - CARDIAC FAILURE [None]
  - CARDIAC FAILURE ACUTE [None]
  - CATHETER SEPSIS [None]
  - CHOLESTASIS [None]
  - COR PULMONALE [None]
  - DISTURBANCE IN ATTENTION [None]
  - ELECTROLYTE IMBALANCE [None]
  - GENERAL PHYSICAL HEALTH DETERIORATION [None]
  - HAEMODIALYSIS [None]
  - HYPOTENSION [None]
  - LETHARGY [None]
  - OPTIC ISCHAEMIC NEUROPATHY [None]
  - PROCALCITONIN [None]
  - PROCEDURAL HYPOTENSION [None]
  - PSEUDOMEMBRANOUS COLITIS [None]
  - RENAL FAILURE CHRONIC [None]
  - STREPTOCOCCAL INFECTION [None]
  - THROMBOTIC MICROANGIOPATHY [None]
